FAERS Safety Report 24949808 (Version 1)
Quarter: 2025Q1

REPORT INFORMATION
  Report Type: Spontaneous
  Country: US (occurrence: None)
  Receive Date: 20250209
  Receipt Date: 20250209
  Transmission Date: 20250409
  Serious: Yes (Life-Threatening, Hospitalization, Disabling)
  Sender: FDA-CTU
  Company Number: None

PATIENT
  Age: 62 Year
  Sex: Female
  Weight: 58.95 kg

DRUGS (7)
  1. TOPAMAX [Suspect]
     Active Substance: TOPIRAMATE
     Indication: Depression
     Dosage: OTHER QUANTITY : 1 TABLET(S);?FREQUENCY : AT BEDTIME;?
     Route: 048
     Dates: start: 20240313, end: 20250112
  2. BENAZEPRIL [Concomitant]
     Active Substance: BENAZEPRIL HYDROCHLORIDE
  3. HYDROXYZINE HYDROCHLORIDE [Concomitant]
     Active Substance: HYDROXYZINE HYDROCHLORIDE
  4. ROSUVASTATIN CALCIUM [Concomitant]
     Active Substance: ROSUVASTATIN CALCIUM
  5. aripiorazole [Concomitant]
  6. MELATONIN [Concomitant]
     Active Substance: MELATONIN
  7. TRAZODONE [Concomitant]
     Active Substance: TRAZODONE HYDROCHLORIDE

REACTIONS (3)
  - Blood sodium decreased [None]
  - Accidental overdose [None]
  - Mental disorder [None]

NARRATIVE: CASE EVENT DATE: 20241224
